FAERS Safety Report 6076319-8 (Version None)
Quarter: 2009Q1

REPORT INFORMATION
  Report Type: 
  Country: None (occurrence: None)
  Receive Date: 20090209
  Receipt Date: 20090122
  Transmission Date: 20090719
  Serious: Yes (Death, Disabling)
  Sender: FDA-Public Use
  Company Number: 2009AL000419

PATIENT
  Sex: Male

DRUGS (1)
  1. PHENYTOIN [Suspect]
     Dates: start: 20020701

REACTIONS (18)
  - ACUTE GENERALISED EXANTHEMATOUS PUSTULOSIS [None]
  - ANHEDONIA [None]
  - ANXIETY [None]
  - DRUG ERUPTION [None]
  - DRUG RASH WITH EOSINOPHILIA AND SYSTEMIC SYMPTOMS [None]
  - ECONOMIC PROBLEM [None]
  - EMOTIONAL DISTRESS [None]
  - ERYTHEMA MULTIFORME [None]
  - FEAR [None]
  - FEELING ABNORMAL [None]
  - ILL-DEFINED DISORDER [None]
  - INJURY [None]
  - MENTAL DISORDER [None]
  - PAIN [None]
  - SCAR [None]
  - SKIN REACTION [None]
  - STEVENS-JOHNSON SYNDROME [None]
  - TOXIC EPIDERMAL NECROLYSIS [None]
